FAERS Safety Report 25727801 (Version 1)
Quarter: 2025Q3

REPORT INFORMATION
  Report Type: Report from Study
  Country: KR (occurrence: KR)
  Receive Date: 20250826
  Receipt Date: 20250826
  Transmission Date: 20251020
  Serious: Yes (Other)
  Sender: ALEXION PHARMACEUTICALS
  Company Number: KR-AstraZeneca-CH-00811621A

PATIENT
  Sex: Female

DRUGS (1)
  1. OSIMERTINIB [Suspect]
     Active Substance: OSIMERTINIB
     Indication: Lung carcinoma cell type unspecified stage II
     Dosage: 80 MILLIGRAM, QD
     Dates: start: 20240606

REACTIONS (9)
  - Decreased appetite [Not Recovered/Not Resolved]
  - Cystitis [Not Recovered/Not Resolved]
  - Urinary retention [Not Recovered/Not Resolved]
  - Dysuria [Not Recovered/Not Resolved]
  - Abdominal distension [Not Recovered/Not Resolved]
  - Abdominal pain [Not Recovered/Not Resolved]
  - Oedematous kidney [Not Recovered/Not Resolved]
  - Localised oedema [Not Recovered/Not Resolved]
  - Depression [Not Recovered/Not Resolved]
